FAERS Safety Report 6158366-0 (Version None)
Quarter: 2009Q2

REPORT INFORMATION
  Report Type: 
  Country: None (occurrence: None)
  Receive Date: 20090414
  Receipt Date: 20090414
  Transmission Date: 20091009
  Serious: Yes (Other)
  Sender: FDA-Public Use
  Company Number: None

PATIENT
  Age: 69 Year
  Sex: Female
  Weight: 70.3075 kg

DRUGS (1)
  1. ACTONEL [Suspect]
     Indication: OSTEOPOROSIS
     Dosage: ONE TABLET ONCE PER MONTH PO
     Route: 048
     Dates: start: 20090326, end: 20090326

REACTIONS (5)
  - DIARRHOEA [None]
  - INSOMNIA [None]
  - NAUSEA [None]
  - PRURITUS GENERALISED [None]
  - RASH [None]
